FAERS Safety Report 23552852 (Version 1)
Quarter: 2024Q1

REPORT INFORMATION
  Report Type: Spontaneous
  Country: IT (occurrence: IT)
  Receive Date: 20240222
  Receipt Date: 20240222
  Transmission Date: 20240410
  Serious: Yes (Other)
  Sender: FDA-Public Use
  Company Number: IT-MINISAL02-969573

PATIENT
  Age: 64 Year
  Sex: Female
  Weight: 71 kg

DRUGS (4)
  1. ATORVASTATIN [Suspect]
     Active Substance: ATORVASTATIN
     Indication: Dyslipidaemia
     Dosage: UNK
     Route: 048
     Dates: start: 202302
  2. FLECAINIDE [Suspect]
     Active Substance: FLECAINIDE
     Indication: Atrial fibrillation
     Dosage: UNK, TWO TIMES A DAY
     Route: 048
     Dates: start: 202102
  3. NEBIVOLOL [Suspect]
     Active Substance: NEBIVOLOL
     Indication: Atrial fibrillation
     Dosage: UNK, ONCE A DAY
     Route: 048
     Dates: start: 202302
  4. COSOPT [Suspect]
     Active Substance: DORZOLAMIDE HYDROCHLORIDE\TIMOLOL MALEATE
     Indication: Glaucoma
     Dosage: UNK, TWO TIMES A DAY
     Route: 065
     Dates: start: 202101

REACTIONS (3)
  - Eye pruritus [Not Recovered/Not Resolved]
  - Erythema of eyelid [Not Recovered/Not Resolved]
  - Eyelid oedema [Not Recovered/Not Resolved]

NARRATIVE: CASE EVENT DATE: 20230701
